FAERS Safety Report 9925189 (Version 2)
Quarter: 2014Q2

REPORT INFORMATION
  Report Type: Spontaneous
  Country: DE (occurrence: DE)
  Receive Date: 20140226
  Receipt Date: 20140401
  Transmission Date: 20141212
  Serious: Yes (Other)
  Sender: FDA-Public Use
  Company Number: DE-ELI_LILLY_AND_COMPANY-DE201402005085

PATIENT
  Age: 19 Year
  Sex: Female

DRUGS (2)
  1. STRATTERA [Suspect]
     Indication: ATTENTION DEFICIT/HYPERACTIVITY DISORDER
     Dosage: UNK UNK, UNKNOWN
     Route: 048
     Dates: start: 20140115, end: 20140210
  2. STRATTERA [Suspect]
     Dosage: 40 MG, UNKNOWN
     Route: 065

REACTIONS (2)
  - Intentional self-injury [Recovered/Resolved]
  - Aggression [Recovered/Resolved]
